FAERS Safety Report 17263336 (Version 1)
Quarter: 2020Q1

REPORT INFORMATION
  Report Type: Spontaneous
  Country: US (occurrence: US)
  Receive Date: 20200113
  Receipt Date: 20200113
  Transmission Date: 20200409
  Serious: No
  Sender: FDA-Public Use
  Company Number: US-SIGMAPHARM LABORATORIES, LLC-2019SIG00103

PATIENT
  Age: 64 Year
  Sex: Male
  Weight: 104.31 kg

DRUGS (6)
  1. LIOTHYRONINE SODIUM. [Suspect]
     Active Substance: LIOTHYRONINE SODIUM
     Dosage: 10 MCG, 1X/DAY
     Route: 048
     Dates: start: 20190824, end: 20190830
  2. LIOTHYRONINE SODIUM. [Suspect]
     Active Substance: LIOTHYRONINE SODIUM
     Dosage: 5 MCG, 1X/DAY WITH 5 MCG FROM OTHER BOTTLE
     Dates: start: 20190902, end: 20190902
  3. LIOTHYRONINE SODIUM. [Suspect]
     Active Substance: LIOTHYRONINE SODIUM
     Dosage: 10 MCG, 1X/DAY
     Route: 048
     Dates: start: 20190831, end: 20190901
  4. LIOTHYRONINE SODIUM. [Suspect]
     Active Substance: LIOTHYRONINE SODIUM
     Indication: AUTOIMMUNE THYROIDITIS
     Dosage: 10 MCG, 1X/DAY
     Route: 048
     Dates: start: 2017, end: 20190823
  5. LIOTHYRONINE SODIUM. [Suspect]
     Active Substance: LIOTHYRONINE SODIUM
     Dosage: 10 MCG, 1X/DAY
     Route: 048
     Dates: start: 20190903, end: 20190903
  6. TAURINE [Concomitant]
     Active Substance: TAURINE
     Dosage: 1 G, 2X/DAY IN THE MORNING AND AFTERNOON

REACTIONS (3)
  - Fatigue [Recovered/Resolved]
  - Asthenia [Recovered/Resolved]
  - Heart rate increased [Recovered/Resolved]

NARRATIVE: CASE EVENT DATE: 20190826
